FAERS Safety Report 4668577-9 (Version None)
Quarter: 2005Q2

REPORT INFORMATION
  Report Type: 
  Country: None (occurrence: None)
  Receive Date: 20050523
  Receipt Date: 20040803
  Transmission Date: 20051028
  Serious: Yes (Other)
  Sender: FDA-Public Use
  Company Number: PHNU2004DE02726

PATIENT
  Sex: Male
  Weight: 87 kg

DRUGS (1)
  1. ZOMETA [Suspect]
     Indication: PLASMACYTOMA
     Dosage: 4 MG, QMO
     Route: 042
     Dates: start: 20021201, end: 20040701

REACTIONS (3)
  - JAW DISORDER [None]
  - ORAL SURGERY [None]
  - OSTEONECROSIS [None]
